FAERS Safety Report 13583781 (Version 1)
Quarter: 2017Q2

REPORT INFORMATION
  Report Type: Spontaneous
  Country: PK (occurrence: PK)
  Receive Date: 20170526
  Receipt Date: 20170526
  Transmission Date: 20170830
  Serious: Yes (Other)
  Sender: FDA-Public Use
  Company Number: PK-ALVOGEN-2017-ALVOGEN-092225

PATIENT
  Age: 48 Year
  Sex: Female

DRUGS (3)
  1. NOVOMIX 30 [Concomitant]
     Active Substance: INSULIN ASPART
     Indication: TYPE 2 DIABETES MELLITUS
  2. DAPSONE. [Suspect]
     Active Substance: DAPSONE
     Indication: MOUTH ULCERATION
  3. METFORMIN [Concomitant]
     Active Substance: METFORMIN HYDROCHLORIDE
     Indication: TYPE 2 DIABETES MELLITUS

REACTIONS (4)
  - False negative investigation result [Recovered/Resolved]
  - Anaemia [Unknown]
  - Blood glucose increased [Unknown]
  - Glycosylated haemoglobin decreased [Recovered/Resolved]
